FAERS Safety Report 8002128-6 (Version None)
Quarter: 2011Q4

REPORT INFORMATION
  Report Type: 
  Country: None (occurrence: None)
  Receive Date: 20111222
  Receipt Date: 20111214
  Transmission Date: 20120403
  Serious: Yes (Other)
  Sender: FDA-Public Use
  Company Number: DE-NAPPMUNDI-DEU-2011-0008188

PATIENT
  Age: 47 Year
  Sex: Female

DRUGS (1)
  1. DHC MUNDIPHARMA 90 MG [Suspect]
     Indication: FIBROMYALGIA
     Dosage: 90 MG, BID
     Route: 048
     Dates: start: 20090101

REACTIONS (2)
  - DIZZINESS [None]
  - CEREBRAL HYPOPERFUSION [None]
